FAERS Safety Report 19999534 (Version 2)
Quarter: 2022Q1

REPORT INFORMATION
  Report Type: Spontaneous
  Country: IT (occurrence: IT)
  Receive Date: 20211026
  Receipt Date: 20220324
  Transmission Date: 20220423
  Serious: Yes (Death, Other)
  Sender: FDA-Public Use
  Company Number: IT-NOVARTISPH-NVSC2021IT244294

PATIENT
  Age: 32 Year
  Sex: Female

DRUGS (7)
  1. MESALAMINE [Suspect]
     Active Substance: MESALAMINE
     Indication: Crohn^s disease
     Dosage: UNK
     Route: 065
  2. CISPLATIN [Suspect]
     Active Substance: CISPLATIN
     Indication: Metaplastic breast carcinoma
     Dosage: 60 MG/M2, ON DAY 1
     Route: 065
     Dates: start: 201911, end: 201912
  3. VINORELBINE [Suspect]
     Active Substance: VINORELBINE TARTRATE
     Indication: Metaplastic breast carcinoma
     Dosage: 20 MG/M2, ON DAY 1 AND 3
     Route: 065
     Dates: start: 201911, end: 201912
  4. BEVACIZUMAB [Suspect]
     Active Substance: BEVACIZUMAB
     Indication: Metaplastic breast carcinoma
     Dosage: 15 MG/KG, TIW
     Route: 065
     Dates: start: 20200318, end: 20200318
  5. CAPECITABINE [Suspect]
     Active Substance: CAPECITABINE
     Indication: Metaplastic breast carcinoma
     Dosage: 500 MG, 0.33 DAY
     Route: 065
     Dates: start: 201911, end: 201912
  6. EVEROLIMUS [Concomitant]
     Active Substance: EVEROLIMUS
     Indication: Product used for unknown indication
     Dosage: UNK
     Route: 065
     Dates: start: 20200228, end: 20200318
  7. DOXORUBICIN [Concomitant]
     Active Substance: DOXORUBICIN
     Indication: Product used for unknown indication
     Dosage: 30 MG/M2
     Route: 065
     Dates: start: 20200228, end: 20200318

REACTIONS (3)
  - Breast cancer [Fatal]
  - Off label use [Unknown]
  - Disease progression [Unknown]
